FAERS Safety Report 6585231-7 (Version None)
Quarter: 2010Q1

REPORT INFORMATION
  Report Type: 
  Country: None (occurrence: None)
  Receive Date: 20100204
  Receipt Date: 20100125
  Transmission Date: 20100710
  Serious: Yes (Death)
  Sender: FDA-Public Use
  Company Number: 493371

PATIENT

DRUGS (4)
  1. PACLITAXEL [Suspect]
     Indication: BREAST CANCER
  2. ADRIAMYCIN PFS [Suspect]
     Indication: BREAST CANCER
  3. CYCLOPHOSPHAMIDE [Suspect]
     Indication: BREAST CANCER
  4. (THERAPEUTIC RADIOPHARMACEUTICALS) [Suspect]
     Indication: BREAST CANCER

REACTIONS (2)
  - ACUTE MYELOID LEUKAEMIA [None]
  - STEM CELL TRANSPLANT [None]
